FAERS Safety Report 24147216 (Version 1)
Quarter: 2024Q3

REPORT INFORMATION
  Report Type: Spontaneous
  Country: US (occurrence: US)
  Receive Date: 20240729
  Receipt Date: 20240729
  Transmission Date: 20241016
  Serious: Yes (Other)
  Sender: BRISTOL MYERS SQUIBB
  Company Number: US-BRISTOL-MYERS SQUIBB COMPANY-2024-118444

PATIENT
  Age: 78 Year
  Sex: Female

DRUGS (4)
  1. REVLIMID [Suspect]
     Active Substance: LENALIDOMIDE
     Indication: Plasma cell myeloma
     Dosage: FREQUENCY: DAILY 21 DAYS ON 7 DAYS OFF
     Route: 048
     Dates: start: 20240629, end: 20240720
  2. ACYCLOVIR [Concomitant]
     Active Substance: ACYCLOVIR
     Dosage: DOSE: 400
  3. CARVEDILOL [Concomitant]
     Active Substance: CARVEDILOL
     Dosage: DOSE: 12.5
  4. DEXAMETHASONE [Concomitant]
     Active Substance: DEXAMETHASONE

REACTIONS (1)
  - Drug ineffective [Unknown]
